FAERS Safety Report 24875586 (Version 1)
Quarter: 2025Q1

REPORT INFORMATION
  Report Type: Spontaneous
  Country: FR (occurrence: FR)
  Receive Date: 20250122
  Receipt Date: 20250122
  Transmission Date: 20250409
  Serious: Yes (Other)
  Sender: PFIZER
  Company Number: FR-PFIZER INC-202500014042

PATIENT
  Age: 70 Year
  Sex: Female

DRUGS (1)
  1. NOVATREX (METHOTREXATE) [Suspect]
     Active Substance: METHOTREXATE SODIUM
     Indication: Rheumatoid arthritis

REACTIONS (10)
  - Squamous cell carcinoma [Unknown]
  - Nodule [Unknown]
  - Skin disorder [Unknown]
  - Mucosal dryness [Unknown]
  - Vulvovaginal dryness [Unknown]
  - Dry eye [Unknown]
  - Arthropathy [Unknown]
  - Fatigue [Unknown]
  - Depressed mood [Unknown]
  - Head discomfort [Unknown]
